FAERS Safety Report 8123812-X (Version None)
Quarter: 2012Q1

REPORT INFORMATION
  Report Type: 
  Country: None (occurrence: None)
  Receive Date: 20120208
  Receipt Date: 20120131
  Transmission Date: 20120608
  Serious: Yes (Other)
  Sender: FDA-Public Use
  Company Number: US-ASTRAZENECA-2012SE06664

PATIENT
  Age: 76 Year
  Sex: Male
  Weight: 72.6 kg

DRUGS (8)
  1. WARFARIN SODIUM [Interacting]
     Route: 065
  2. BENACAR [Concomitant]
     Indication: BLOOD PRESSURE
  3. LEVOTHYROXINE SODIUM [Concomitant]
     Indication: THYROID DISORDER
  4. TERACOSIN [Concomitant]
     Indication: BLOOD PRESSURE
  5. NEXIUM [Suspect]
     Indication: GASTROOESOPHAGEAL REFLUX DISEASE
     Dosage: TAKING 30 MINUTES BEFORE BREAKFAST
     Route: 048
  6. MV [Concomitant]
  7. TERACOSIN [Concomitant]
     Indication: BENIGN PROSTATIC HYPERPLASIA
  8. XANAX [Concomitant]
     Indication: ANXIETY
     Dosage: HALF A TABLET

REACTIONS (3)
  - THROMBOSIS [None]
  - DRUG INTERACTION [None]
  - INAPPROPRIATE SCHEDULE OF DRUG ADMINISTRATION [None]
